FAERS Safety Report 7933364-2 (Version None)
Quarter: 2011Q4

REPORT INFORMATION
  Report Type: 
  Country: None (occurrence: None)
  Receive Date: 20111122
  Receipt Date: 20111122
  Transmission Date: 20120403
  Serious: Yes (Life-Threatening, Hospitalization)
  Sender: FDA-Public Use
  Company Number: None

PATIENT
  Age: 90 Year
  Sex: Female
  Weight: 58.1 kg

DRUGS (1)
  1. PRADAXA [Suspect]
     Dosage: 75MG
     Route: 048

REACTIONS (8)
  - HYPOAESTHESIA [None]
  - CONFUSIONAL STATE [None]
  - DISORIENTATION [None]
  - URINARY INCONTINENCE [None]
  - PULMONARY HAEMORRHAGE [None]
  - ASTHENIA [None]
  - VISION BLURRED [None]
  - DIZZINESS [None]
